FAERS Safety Report 4948150-5 (Version None)
Quarter: 2006Q1

REPORT INFORMATION
  Report Type: 
  Country: None (occurrence: None)
  Receive Date: 20060127
  Receipt Date: 20050422
  Transmission Date: 20060701
  Serious: Yes (Death)
  Sender: FDA-Public Use
  Company Number: 05-04-0674

PATIENT
  Age: 67 Year
  Sex: Male

DRUGS (1)
  1. CLOZAPINE [Suspect]
     Indication: ABNORMAL BEHAVIOUR
     Dosage: 50-100MG QD, ORAL
     Route: 048
     Dates: start: 20040201, end: 20050301

REACTIONS (1)
  - PRE-EXISTING DISEASE [None]
